FAERS Safety Report 19674669 (Version 2)
Quarter: 2021Q3

REPORT INFORMATION
  Report Type: Report from Study
  Country: US (occurrence: US)
  Receive Date: 20210809
  Receipt Date: 20210818
  Transmission Date: 20211014
  Serious: Yes (Hospitalization)
  Sender: FDA-Public Use
  Company Number: US-BAYER-2021-184308

PATIENT
  Age: 51 Year
  Sex: Male

DRUGS (1)
  1. STIVARGA [Suspect]
     Active Substance: REGORAFENIB
     Indication: COLORECTAL CANCER
     Dosage: 80 MG DAILY
     Route: 048
     Dates: start: 20210721, end: 20210722

REACTIONS (11)
  - Constipation [Unknown]
  - Dehydration [Unknown]
  - Insomnia [Unknown]
  - Ascites [Recovering/Resolving]
  - Hypokalaemia [Unknown]
  - Fatigue [Recovering/Resolving]
  - Dysphagia [None]
  - Ileus [None]
  - Off label use [Unknown]
  - Dysphagia [Recovering/Resolving]
  - Decreased appetite [Not Recovered/Not Resolved]

NARRATIVE: CASE EVENT DATE: 20210721
